FAERS Safety Report 14624194 (Version 8)
Quarter: 2022Q2

REPORT INFORMATION
  Report Type: Report from Study
  Country: NL (occurrence: None)
  Receive Date: 20180312
  Receipt Date: 20220602
  Transmission Date: 20220721
  Serious: Yes (Hospitalization)
  Sender: FDA-Public Use
  Company Number: NL-ROCHE-2085487

PATIENT
  Age: 82 Year
  Sex: Male
  Weight: 75 kg

DRUGS (14)
  1. ATEZOLIZUMAB [Suspect]
     Active Substance: ATEZOLIZUMAB
     Indication: Transitional cell carcinoma
     Dosage: MOST RECENT DOSE PRIOR TO EVENT ONSET ON 18/JAN/2018 AT 13:50
     Route: 041
     Dates: start: 20170420
  2. CITALOPRAM [Concomitant]
     Active Substance: CITALOPRAM HYDROBROMIDE
     Indication: Depression
     Route: 048
     Dates: start: 20170101
  3. PRAVASTATIN [Concomitant]
     Active Substance: PRAVASTATIN
     Indication: Hypercholesterolaemia
     Route: 048
     Dates: start: 20111209
  4. PANTOPRAZOLE SODIUM [Concomitant]
     Active Substance: PANTOPRAZOLE SODIUM
     Indication: Prophylaxis
     Route: 048
     Dates: start: 20141128
  5. DIPYRIDAMOLE [Concomitant]
     Active Substance: DIPYRIDAMOLE
     Route: 048
     Dates: start: 20111209
  6. ASPIRIN [Concomitant]
     Active Substance: ASPIRIN
     Route: 048
     Dates: start: 20160317
  7. AMOXICILLIN [Concomitant]
     Active Substance: AMOXICILLIN
     Indication: Urinary tract infection
     Route: 048
     Dates: start: 20180202, end: 20180307
  8. AMOXICILLIN [Concomitant]
     Active Substance: AMOXICILLIN
     Indication: Giant cell arteritis
  9. TEMAZEPAM [Concomitant]
     Active Substance: TEMAZEPAM
     Indication: Prophylaxis
     Route: 048
     Dates: start: 20180303, end: 20180307
  10. LATANOPROST [Concomitant]
     Active Substance: LATANOPROST
     Dosage: PROPHYLACTIC GLAUCOMA
     Route: 047
     Dates: start: 20180303
  11. ACETAMINOPHEN [Concomitant]
     Active Substance: ACETAMINOPHEN
     Route: 048
     Dates: start: 20180304, end: 20180415
  12. ALENDRONIC ACID [Concomitant]
     Active Substance: ALENDRONIC ACID
     Route: 048
     Dates: start: 20180307
  13. SULFAMETHOXAZOLE\TRIMETHOPRIM [Concomitant]
     Active Substance: SULFAMETHOXAZOLE\TRIMETHOPRIM
     Route: 048
     Dates: start: 20180306
  14. CIPROFLOXACIN [Concomitant]
     Active Substance: CIPROFLOXACIN
     Indication: Headache
     Route: 048
     Dates: start: 20180307

REACTIONS (2)
  - Headache [Recovered/Resolved]
  - Vomiting [Recovered/Resolved]

NARRATIVE: CASE EVENT DATE: 20180302
